FAERS Safety Report 24793805 (Version 1)
Quarter: 2024Q4

REPORT INFORMATION
  Report Type: Spontaneous
  Country: CN (occurrence: CN)
  Receive Date: 20241231
  Receipt Date: 20241231
  Transmission Date: 20250115
  Serious: Yes (Hospitalization, Other)
  Sender: ALKEM
  Company Number: None

PATIENT
  Age: 71 Year
  Sex: Male

DRUGS (9)
  1. TACROLIMUS [Suspect]
     Active Substance: TACROLIMUS
     Indication: Myasthenia gravis
     Dosage: 3 MILLIGRAM, QD (EVERY 1 DAY) (CAPSULE) (2MG QD AM, FOLLOWED BY 1MG QD PM)
     Route: 065
  2. METHYLPREDNISOLONE [Suspect]
     Active Substance: METHYLPREDNISOLONE
     Indication: Myasthenia gravis
     Dosage: 20 MILLIGRAM, QD (EVERY 1 DAY) (TABLET)
     Route: 065
  3. CYCLOPHOSPHAMIDE [Suspect]
     Active Substance: CYCLOPHOSPHAMIDE
     Indication: Myasthenia gravis
     Dosage: 0.8 GRAM, ONCE WEEKLY (EVERY 1 WEEK)
     Route: 042
  4. ASPIRIN [Concomitant]
     Active Substance: ASPIRIN
     Indication: Product used for unknown indication
     Dosage: UNK (ENTERIC-COATED TABLETS)
     Route: 065
  5. ISOSORBIDE DINITRATE [Concomitant]
     Active Substance: ISOSORBIDE DINITRATE
     Indication: Product used for unknown indication
     Dosage: UNK
     Route: 065
  6. METOPROLOL TARTRATE [Concomitant]
     Active Substance: METOPROLOL TARTRATE
     Indication: Product used for unknown indication
     Dosage: UNK
     Route: 065
  7. PYRIDOSTIGMINE BROMIDE [Concomitant]
     Active Substance: PYRIDOSTIGMINE BROMIDE
     Indication: Myasthenia gravis
     Dosage: 60 MILLIGRAM, QID (EVERY 6 HOUR)
     Route: 065
  8. REPAGLINIDE [Concomitant]
     Active Substance: DULOXETINE HYDROCHLORIDE\REPAGLINIDE\TICAGRELOR
     Indication: Type 2 diabetes mellitus
     Dosage: 1 MILLIGRAM, TID (EVERY 8 HOUR)
     Route: 065
  9. SODIUM CHLORIDE [Concomitant]
     Active Substance: SODIUM CHLORIDE
     Indication: Myasthenia gravis
     Dosage: 1000 MILLILITER, ONCE WEEKLY (EVERY 1 WEEK)
     Route: 042

REACTIONS (2)
  - Pulmonary nocardiosis [Recovered/Resolved]
  - Nocardiosis [Recovered/Resolved]

NARRATIVE: CASE EVENT DATE: 20231023
